APPROVED DRUG PRODUCT: OSTEOSCAN
Active Ingredient: TECHNETIUM TC-99M ETIDRONATE KIT
Strength: N/A
Dosage Form/Route: INJECTABLE;INJECTION
Application: N017454 | Product #001
Applicant: MALLINCKRODT INC
Approved: Approved Prior to Jan 1, 1982 | RLD: No | RS: No | Type: DISCN